FAERS Safety Report 20001536 (Version 1)
Quarter: 2021Q4

REPORT INFORMATION
  Report Type: Spontaneous
  Country: RU (occurrence: RU)
  Receive Date: 20211027
  Receipt Date: 20211027
  Transmission Date: 20220304
  Serious: Yes (Other)
  Sender: FDA-Public Use
  Company Number: RU-LUPIN PHARMACEUTICALS INC.-2021-20624

PATIENT
  Age: 46 Year
  Sex: Male

DRUGS (7)
  1. HYDROXYCHLOROQUINE [Interacting]
     Active Substance: HYDROXYCHLOROQUINE
     Indication: COVID-19
     Dosage: 400 MILLIGRAM, BID
     Route: 065
  2. CEFTRIAXONE [Interacting]
     Active Substance: CEFTRIAXONE
     Indication: COVID-19
     Dosage: 1000 MILLIGRAM, QD
     Route: 065
  3. AZITHROMYCIN ANHYDROUS [Interacting]
     Active Substance: AZITHROMYCIN ANHYDROUS
     Indication: COVID-19
     Dosage: 500 MILLIGRAM, QD
     Route: 065
  4. BARICITINIB [Interacting]
     Active Substance: BARICITINIB
     Indication: COVID-19
     Dosage: 4 MILLIGRAM, QD
     Route: 065
  5. DEXAMETHASONE [Interacting]
     Active Substance: DEXAMETHASONE
     Indication: COVID-19
     Dosage: 8 MILLIGRAM, QD
     Route: 065
  6. METHOTREXATE [Concomitant]
     Active Substance: METHOTREXATE
     Indication: Psoriatic arthropathy
     Dosage: 20 MILLIGRAM
     Route: 065
  7. ENOXAPARIN SODIUM [Concomitant]
     Active Substance: ENOXAPARIN SODIUM
     Indication: Product used for unknown indication
     Dosage: 0.4 MILLIGRAM, QD
     Route: 065

REACTIONS (4)
  - Psoriasis [Recovering/Resolving]
  - Psoriatic arthropathy [Recovering/Resolving]
  - Drug interaction [Unknown]
  - Off label use [Unknown]
